FAERS Safety Report 6687891-9 (Version None)
Quarter: 2010Q2

REPORT INFORMATION
  Report Type: 
  Country: None (occurrence: None)
  Receive Date: 20100420
  Receipt Date: 20100329
  Transmission Date: 20101027
  Serious: Yes (Hospitalization)
  Sender: FDA-Public Use
  Company Number: IT-BAYER-200817426GPV

PATIENT

DRUGS (15)
  1. CAMPATH [Suspect]
     Indication: PERIPHERAL T-CELL LYMPHOMA UNSPECIFIED
     Dosage: TOTAL DAILY DOSE: 3 MG
     Route: 058
     Dates: start: 20071006, end: 20071006
  2. CAMPATH [Suspect]
     Dosage: TOTAL DAILY DOSE: 10 MG
     Route: 058
     Dates: start: 20071007, end: 20071007
  3. CAMPATH [Suspect]
     Dosage: TOTAL DAILY DOSE: 30 MG
     Route: 058
  4. CAMPATH [Suspect]
     Dosage: TOTAL DAILY DOSE: 20 MG
     Route: 058
     Dates: start: 20071008, end: 20071008
  5. PREDNISONE [Suspect]
     Indication: PERIPHERAL T-CELL LYMPHOMA UNSPECIFIED
     Dosage: CHOP-C FOR 2 CYCLES EVERY 21 DAYS
     Route: 048
  6. DOXORUBICIN HCL [Suspect]
     Indication: PERIPHERAL T-CELL LYMPHOMA UNSPECIFIED
     Dosage: CHOP-C FOR 2 CYCLES EVERY 21 DAYS
     Route: 042
  7. VINCRISTINE [Suspect]
     Indication: PERIPHERAL T-CELL LYMPHOMA UNSPECIFIED
     Dosage: CHOP-C FOR 2 CYCLES EVERY 21 DAYS
     Route: 042
  8. CYCLOPHOSPHAMIDE [Suspect]
     Indication: PERIPHERAL T-CELL LYMPHOMA UNSPECIFIED
     Dosage: CHOP-C FOR 2 CYCLES EVERY 21 DAYS
     Route: 042
  9. METHOTREXATE [Suspect]
     Indication: PERIPHERAL T-CELL LYMPHOMA UNSPECIFIED
     Dosage: AT DAYS 1 AND 21 DURING THE FIRST 2 CHOP-C CYCLES VIA LUMBAR PUNCTURE
     Route: 037
  10. METHOTREXATE [Suspect]
     Dosage: HYPER-C-HIDAM
     Route: 042
     Dates: start: 20080313
  11. ARA-C [Suspect]
     Indication: PERIPHERAL T-CELL LYMPHOMA UNSPECIFIED
     Dosage: AT DAYS 1 AND 21 DURING THE FIRST 2 CHOP-C CYCLES VIA LUMBAR PUNCTURE
     Route: 037
  12. ARA-C [Suspect]
     Dosage: HYPER-C-HIDAM
     Route: 065
  13. DEXAMETHASONE [Suspect]
     Indication: PERIPHERAL T-CELL LYMPHOMA UNSPECIFIED
     Dosage: AT DAYS 1 AND 21 DURING THE FIRST 2 CHOP-C CYCLES VIA LUMBAR PUNCTURE
     Route: 037
  14. CYCLOPHOSPHAMIDE [Suspect]
     Dosage: HYPER-C-HIDAM
     Route: 042
  15. NEUPOGEN [Suspect]
     Indication: PERIPHERAL T-CELL LYMPHOMA UNSPECIFIED
     Dosage: HYPER-C-HIDAM
     Route: 065

REACTIONS (4)
  - ABDOMINAL PAIN [None]
  - ANAEMIA [None]
  - DIARRHOEA HAEMORRHAGIC [None]
  - INTESTINAL HAEMORRHAGE [None]
